FAERS Safety Report 15586568 (Version 5)
Quarter: 2020Q2

REPORT INFORMATION
  Report Type: Spontaneous
  Country: US (occurrence: US)
  Receive Date: 20181105
  Receipt Date: 20200624
  Transmission Date: 20200713
  Serious: No
  Sender: FDA-Public Use
  Company Number: US-PFIZER INC-2017193779

PATIENT
  Age: 58 Year
  Sex: Female

DRUGS (5)
  1. LYRICA [Suspect]
     Active Substance: PREGABALIN
     Indication: PAIN IN EXTREMITY
  2. LYRICA [Suspect]
     Active Substance: PREGABALIN
     Indication: DIABETIC NEUROPATHY
     Dosage: 100 MG, 3X/DAY
     Route: 048
  3. LYRICA [Suspect]
     Active Substance: PREGABALIN
     Indication: PERIPHERAL NERVE INJURY
     Dosage: 100 MG, 3X/DAY
     Route: 048
     Dates: start: 20190703
  4. TRAMADOL. [Concomitant]
     Active Substance: TRAMADOL
     Dosage: UNK
  5. LYRICA [Suspect]
     Active Substance: PREGABALIN
     Indication: RESTLESS LEGS SYNDROME
     Dosage: 75 MG, UNK

REACTIONS (11)
  - Intentional product misuse [Unknown]
  - Constipation [Unknown]
  - Feeling abnormal [Unknown]
  - Disorientation [Unknown]
  - Nausea [Unknown]
  - Body height decreased [Unknown]
  - Diarrhoea [Unknown]
  - Weight increased [Unknown]
  - Vomiting [Unknown]
  - Insomnia [Unknown]
  - Influenza [Unknown]
